FAERS Safety Report 8056751-3 (Version None)
Quarter: 2012Q1

REPORT INFORMATION
  Report Type: 
  Country: None (occurrence: None)
  Receive Date: 20120119
  Receipt Date: 20120110
  Transmission Date: 20120608
  Serious: Yes (Hospitalization)
  Sender: FDA-Public Use
  Company Number: US-GLAXOSMITHKLINE-A0877040A

PATIENT
  Sex: Male
  Weight: 89.1 kg

DRUGS (13)
  1. LASIX [Concomitant]
  2. PREVACID [Concomitant]
  3. ASPIRIN [Concomitant]
  4. COREG [Concomitant]
  5. DIOVAN [Concomitant]
  6. METOPROLOL TARTRATE [Concomitant]
  7. LOTREL [Concomitant]
  8. LISINOPRIL [Concomitant]
  9. LIPITOR [Concomitant]
  10. METFORMIN [Concomitant]
  11. PRINIVIL [Concomitant]
  12. AVANDIA [Suspect]
     Indication: DIABETES MELLITUS
     Dosage: 4MG TWICE PER DAY
     Route: 048
     Dates: start: 20050301, end: 20070301
  13. AVANDAMET [Suspect]
     Indication: TYPE 2 DIABETES MELLITUS
     Route: 048
     Dates: start: 20041201, end: 20050301

REACTIONS (7)
  - SICK SINUS SYNDROME [None]
  - CARDIAC ARREST [None]
  - TRANSIENT ISCHAEMIC ATTACK [None]
  - ATRIAL FIBRILLATION [None]
  - CARDIAC FAILURE CONGESTIVE [None]
  - CORONARY ARTERY DISEASE [None]
  - MYOCARDIAL INFARCTION [None]
